FAERS Safety Report 6772578-4 (Version None)
Quarter: 2010Q2

REPORT INFORMATION
  Report Type: 
  Country: None (occurrence: None)
  Receive Date: 20100616
  Receipt Date: 20091117
  Transmission Date: 20101027
  Serious: No
  Sender: FDA-Public Use
  Company Number: US-ASTRAZENECA-2009SE19938

PATIENT
  Age: 11 Year
  Sex: Female

DRUGS (3)
  1. PULMICORT FLEXHALER [Suspect]
     Indication: ASTHMA
     Route: 055
     Dates: start: 20091005
  2. NASONEX [Concomitant]
  3. ALBUTEROL [Concomitant]

REACTIONS (3)
  - ASTHMA [None]
  - NASOPHARYNGITIS [None]
  - PRODUCT QUALITY ISSUE [None]
